FAERS Safety Report 8062067-1 (Version None)
Quarter: 2012Q1

REPORT INFORMATION
  Report Type: 
  Country: None (occurrence: None)
  Receive Date: 20120120
  Receipt Date: 20120120
  Transmission Date: 20120608
  Serious: Yes (Hospitalization)
  Sender: FDA-Public Use
  Company Number: None

PATIENT
  Sex: Female
  Weight: 90.8 kg

DRUGS (3)
  1. PRAVASTATIN SODIUM [Suspect]
     Dosage: 10240 MG
  2. IDARUBICIN HCL [Suspect]
     Dosage: 75 MG
  3. CYTARABINE [Suspect]
     Dosage: 12.4 G

REACTIONS (2)
  - ACUTE MYELOID LEUKAEMIA [None]
  - PNEUMONIA [None]
